FAERS Safety Report 6022659-8 (Version None)
Quarter: 2008Q4

REPORT INFORMATION
  Report Type: 
  Country: None (occurrence: None)
  Receive Date: 20081230
  Receipt Date: 20080414
  Transmission Date: 20090506
  Serious: No
  Sender: FDA-Public Use
  Company Number: US-BAYER-200811660BCC

PATIENT
  Age: 30 Year
  Sex: Male
  Weight: 67 kg

DRUGS (1)
  1. ALEVE [Suspect]
     Indication: NASOPHARYNGITIS
     Dosage: TOTAL DAILY DOSE: 440 MG  UNIT DOSE: 220 MG
     Route: 048
     Dates: start: 20080413

REACTIONS (4)
  - BLISTER [None]
  - HYPERSENSITIVITY [None]
  - LIP BLISTER [None]
  - LIP SWELLING [None]
